FAERS Safety Report 22127041 (Version 1)
Quarter: 2023Q1

REPORT INFORMATION
  Report Type: Spontaneous
  Country: US (occurrence: US)
  Receive Date: 20230322
  Receipt Date: 20230322
  Transmission Date: 20230418
  Serious: No
  Sender: FDA-Public Use
  Company Number: US-ALLERGAN-2302268US

PATIENT
  Age: 71 Year
  Sex: Female
  Weight: 76.203 kg

DRUGS (9)
  1. PRED FORTE [Suspect]
     Active Substance: PREDNISOLONE ACETATE
     Indication: Keratitis
     Dosage: UNK
     Dates: start: 202302
  2. PRED FORTE [Suspect]
     Active Substance: PREDNISOLONE ACETATE
     Indication: Corneal oedema
     Dosage: 3 GTT, QD
     Route: 047
     Dates: start: 2010, end: 202302
  3. RESTASIS [Suspect]
     Active Substance: CYCLOSPORINE
     Indication: Dry eye
     Dosage: UNK, BID
     Route: 047
  4. TIMOLOL [Concomitant]
     Active Substance: TIMOLOL
     Indication: Glaucoma
     Dosage: UNK, BID
  5. DORZOLAMIDE [Concomitant]
     Active Substance: DORZOLAMIDE
     Indication: Glaucoma
     Dosage: UNK, BID
  6. MURO 128 [Concomitant]
     Active Substance: SODIUM CHLORIDE
     Indication: Corneal oedema
  7. SYSTANE (HYPROMELLOSE 2910 (4000 MPA.S)) [Concomitant]
     Active Substance: HYPROMELLOSE 2910 (4000 MPA.S)
     Indication: Eye disorder
  8. Optive preservative free [Concomitant]
     Indication: Eye disorder
  9. Celluvite [Concomitant]
     Indication: Eye disorder

REACTIONS (6)
  - Accidental exposure to product [Unknown]
  - Inappropriate schedule of product administration [Unknown]
  - Pruritus [Recovered/Resolved]
  - Product dispensing issue [Unknown]
  - Product container issue [Unknown]
  - Eye irritation [Recovered/Resolved]

NARRATIVE: CASE EVENT DATE: 20230201
